FAERS Safety Report 8774390 (Version 6)
Quarter: 2013Q2

REPORT INFORMATION
  Report Type: Report from Study
  Country: US (occurrence: US)
  Receive Date: 20120907
  Receipt Date: 20130521
  Transmission Date: 20140414
  Serious: No
  Sender: FDA-Public Use
  Company Number: US-VERTEX PHARMACEUTICAL INC.-2012-020294

PATIENT
  Age: 62 Year
  Sex: Male

DRUGS (3)
  1. VX-950 (TELAPREVIR) [Suspect]
     Indication: HEPATITIS C
     Dosage: 750 MG, TID
     Route: 048
     Dates: start: 20120610, end: 20120902
  2. PEGASYS [Suspect]
     Indication: HEPATITIS C
     Dosage: 150 ?G, WEEKLY
     Route: 058
     Dates: start: 20120610, end: 20130507
  3. RIBAVIRIN [Suspect]
     Indication: HEPATITIS C
     Dosage: 1400 MG, UNK
     Route: 048
     Dates: start: 20120610, end: 20130507

REACTIONS (8)
  - Pain [Not Recovered/Not Resolved]
  - Abdominal discomfort [Not Recovered/Not Resolved]
  - Constipation [Not Recovered/Not Resolved]
  - Alopecia [Not Recovered/Not Resolved]
  - Fatigue [Not Recovered/Not Resolved]
  - Drug ineffective [Recovered/Resolved]
  - Haemorrhoids [Not Recovered/Not Resolved]
  - Nausea [Not Recovered/Not Resolved]
